FAERS Safety Report 7827823-0 (Version None)
Quarter: 2011Q4

REPORT INFORMATION
  Report Type: 
  Country: None (occurrence: None)
  Receive Date: 20111020
  Receipt Date: 20111013
  Transmission Date: 20120403
  Serious: Yes (Other)
  Sender: FDA-Public Use
  Company Number: US-BAYER-2011-099701

PATIENT
  Age: 62 Year
  Sex: Female
  Weight: 67 kg

DRUGS (13)
  1. MIDRIN [Suspect]
     Indication: MIGRAINE
  2. VITAMIN B-12 [Concomitant]
  3. FLORINEF [Concomitant]
  4. COENZYME Q10 [Concomitant]
  5. VITAMIIN C [Concomitant]
  6. FISH OIL [Concomitant]
  7. ALEVE (CAPLET) [Suspect]
     Indication: MIGRAINE
     Dosage: 220 MG, BID
     Route: 048
     Dates: start: 20000101
  8. PETADOLEX [Concomitant]
  9. UNKNOWN [Concomitant]
  10. GLUCOSAMINE [Concomitant]
  11. ACEBUTOLOL [Concomitant]
  12. PEPCID AC [Concomitant]
  13. VITAMIN D [Concomitant]

REACTIONS (2)
  - HAEMATEMESIS [None]
  - BLOOD PRESSURE INCREASED [None]
